FAERS Safety Report 7130680-1 (Version None)
Quarter: 2010Q4

REPORT INFORMATION
  Report Type: 
  Country: None (occurrence: None)
  Receive Date: 20101201
  Receipt Date: 20101124
  Transmission Date: 20110411
  Serious: Yes (Hospitalization, Other)
  Sender: FDA-Public Use
  Company Number: US-ELI_LILLY_AND_COMPANY-US201009007125

PATIENT
  Sex: Male
  Weight: 84.807 kg

DRUGS (11)
  1. EFFIENT [Suspect]
     Indication: CORONARY ARTERIAL STENT INSERTION
     Dosage: 10 MG, DAILY (1/D)
     Dates: start: 20100908
  2. PROTONIX [Concomitant]
  3. IMDUR [Concomitant]
     Dosage: 30 MG, UNK
  4. CRESTOR [Concomitant]
  5. ZETIA [Concomitant]
  6. TOPROL-XL [Concomitant]
     Dosage: 12.5 MG, 2/D
  7. ASPIRIN [Concomitant]
     Dosage: 325 MG, DAILY (1/D)
  8. GLUCOSAMINE [Concomitant]
     Indication: ARTHROPATHY
  9. MULTI-VITAMIN [Concomitant]
  10. SYMBICORT [Concomitant]
     Dosage: 1 D/F, 2/D
     Route: 055
  11. NITROGLYCERIN [Concomitant]
     Dosage: 0.4 MG, AS NEEDED

REACTIONS (3)
  - CARDIAC OUTPUT DECREASED [None]
  - CHEST PAIN [None]
  - GASTROOESOPHAGEAL REFLUX DISEASE [None]
